FAERS Safety Report 22652121 (Version 1)
Quarter: 2023Q2

REPORT INFORMATION
  Report Type: Spontaneous
  Country: GB (occurrence: GB)
  Receive Date: 20230628
  Receipt Date: 20230628
  Transmission Date: 20230722
  Serious: Yes (Death)
  Sender: FDA-Public Use
  Company Number: None

PATIENT
  Age: 76 Year
  Sex: Female

DRUGS (1)
  1. OLANZAPINE [Suspect]
     Active Substance: OLANZAPINE
     Indication: Depression
     Dosage: UNK UNK, UNKNOWN
     Route: 048
     Dates: end: 20230525

REACTIONS (2)
  - Atrioventricular block [Fatal]
  - Electrocardiogram QT prolonged [Fatal]
